FAERS Safety Report 4293139-5 (Version None)
Quarter: 2004Q1

REPORT INFORMATION
  Report Type: 
  Country: None (occurrence: None)
  Receive Date: 20040212
  Receipt Date: 20030529
  Transmission Date: 20041129
  Serious: Yes (Other)
  Sender: FDA-Public Use
  Company Number: US-GLAXOSMITHKLINE-A0410151A

PATIENT
  Age: 52 Year
  Sex: Female
  Weight: 70.9 kg

DRUGS (4)
  1. PAXIL [Suspect]
     Indication: DEPRESSION
     Route: 048
     Dates: start: 20010101, end: 20030527
  2. ESTROGEN [Concomitant]
     Dates: end: 20030301
  3. SOY SUPPLEMENT [Concomitant]
  4. HERBAL PRODUCT [Concomitant]

REACTIONS (4)
  - DRUG WITHDRAWAL SYNDROME [None]
  - PARAESTHESIA [None]
  - PHOTOPSIA [None]
  - WEIGHT INCREASED [None]
